FAERS Safety Report 17727788 (Version 1)
Quarter: 2020Q2

REPORT INFORMATION
  Report Type: Spontaneous
  Country: NL (occurrence: NL)
  Receive Date: 20200430
  Receipt Date: 20200430
  Transmission Date: 20200714
  Serious: Yes (Other)
  Sender: FDA-Public Use
  Company Number: NL-TEVA-2020-NL-1230951

PATIENT
  Sex: Male

DRUGS (1)
  1. SALBUTAMOL 200 CYCLOCAPS, INHALATIEPOEDER (IN CAPSULES) 200 MICROGRAM [Suspect]
     Active Substance: ALBUTEROL
     Dosage: CYCLOCAPS
     Route: 065

REACTIONS (2)
  - Product physical issue [Unknown]
  - Foreign body aspiration [Unknown]
